FAERS Safety Report 26001681 (Version 1)
Quarter: 2025Q4

REPORT INFORMATION
  Report Type: Spontaneous
  Country: US (occurrence: US)
  Receive Date: 20251105
  Receipt Date: 20251105
  Transmission Date: 20260118
  Serious: Yes (Other)
  Sender: BRISTOL-MYERS SQUIBB COMPANY
  Company Number: US-BRISTOL-MYERS SQUIBB COMPANY-2025-150118

PATIENT
  Age: 75 Year
  Sex: Male
  Weight: 83.91 kg

DRUGS (1)
  1. REVLIMID [Suspect]
     Active Substance: LENALIDOMIDE
     Indication: Follicular lymphoma
     Dosage: 3 WEEKS ON, THEN 1 WEEK OFF
     Route: 048

REACTIONS (3)
  - Rib fracture [Unknown]
  - Abdominal discomfort [Unknown]
  - Vomiting [Unknown]
